FAERS Safety Report 17370750 (Version 1)
Quarter: 2020Q1

REPORT INFORMATION
  Report Type: Spontaneous
  Country: US (occurrence: US)
  Receive Date: 20200205
  Receipt Date: 20200205
  Transmission Date: 20200409
  Serious: Yes (Other)
  Sender: FDA-Public Use
  Company Number: US-CIPLA LTD.-2020US00705

PATIENT

DRUGS (8)
  1. METHIMAZOLE. [Suspect]
     Active Substance: METHIMAZOLE
     Dosage: 2.5 MG, PER DAY, 24TH WEEK
     Route: 065
  2. METHIMAZOLE. [Suspect]
     Active Substance: METHIMAZOLE
     Dosage: 10 MG, PER DAY, 18TH WEEK
     Route: 065
  3. METHIMAZOLE. [Suspect]
     Active Substance: METHIMAZOLE
     Indication: PROPHYLAXIS
     Dosage: 5 MG, PER DAY, 13TH WEEK
     Route: 065
  4. METHIMAZOLE. [Suspect]
     Active Substance: METHIMAZOLE
     Indication: HYPOTHYROIDISM
     Dosage: 30 MG, PER DAY, 15TH WEEK
     Route: 065
  5. METHIMAZOLE. [Suspect]
     Active Substance: METHIMAZOLE
     Dosage: 5 MG, PER DAY, 20TH WEEK
     Route: 065
  6. METOPROLOL. [Suspect]
     Active Substance: METOPROLOL
     Indication: HYPERTENSION
     Dosage: 25 MILLIGRAM, DAILY
     Route: 065
  7. METHIMAZOLE. [Suspect]
     Active Substance: METHIMAZOLE
     Dosage: 15 MG, PER DAY, 17TH WEEK
     Route: 065
  8. METHIMAZOLE. [Suspect]
     Active Substance: METHIMAZOLE
     Dosage: 2.5 MG, PER DAY, 22ND WEEK
     Route: 065

REACTIONS (3)
  - Premature delivery [Unknown]
  - Exposure during pregnancy [Unknown]
  - Pre-eclampsia [Unknown]
